FAERS Safety Report 4753087-0 (Version None)
Quarter: 2005Q3

REPORT INFORMATION
  Report Type: 
  Country: None (occurrence: None)
  Receive Date: 20050826
  Receipt Date: 20050310
  Transmission Date: 20060218
  Serious: Yes (Hospitalization, Disabling)
  Sender: FDA-Public Use
  Company Number: US-MERCK-0503USA02146

PATIENT
  Age: 51 Year
  Sex: Female
  Weight: 91 kg

DRUGS (6)
  1. VIOXX [Suspect]
     Route: 048
     Dates: start: 20021101, end: 20030101
  2. ZOCOR [Concomitant]
     Indication: BLOOD CHOLESTEROL INCREASED
     Route: 065
  3. HUMULIN [Concomitant]
     Indication: DIABETES MELLITUS
     Route: 065
  4. PROZAC [Concomitant]
     Indication: BIPOLAR I DISORDER
     Route: 065
     Dates: start: 20020101
  5. HUMALOG [Concomitant]
     Indication: DIABETES MELLITUS
     Route: 065
  6. LANTUS [Concomitant]
     Indication: DIABETES MELLITUS
     Route: 065

REACTIONS (8)
  - DEPRESSION [None]
  - EMOTIONAL DISTRESS [None]
  - HYPERTENSION [None]
  - PAIN [None]
  - PANIC DISORDER [None]
  - POST-TRAUMATIC STRESS DISORDER [None]
  - RENAL DISORDER [None]
  - THROMBOSIS [None]
